FAERS Safety Report 9692986 (Version 1)
Quarter: 2013Q4

REPORT INFORMATION
  Report Type: Spontaneous
  Country: US (occurrence: None)
  Receive Date: 20131115
  Receipt Date: 20131115
  Transmission Date: 20140711
  Serious: Yes (Other)
  Sender: FDA-Public Use
  Company Number: None

PATIENT
  Age: 30 Year
  Sex: Female
  Weight: 74.84 kg

DRUGS (4)
  1. CYMBALTA [Suspect]
     Indication: PAIN
     Route: 048
     Dates: start: 20130326, end: 20131027
  2. PRILOSEC [Concomitant]
  3. ALLEGRA [Concomitant]
  4. GABAPENTIN [Concomitant]

REACTIONS (6)
  - Dizziness [None]
  - Dyspepsia [None]
  - Withdrawal syndrome [None]
  - Vomiting [None]
  - Feeling abnormal [None]
  - Asthenia [None]
